FAERS Safety Report 7301550-0 (Version None)
Quarter: 2011Q1

REPORT INFORMATION
  Report Type: 
  Country: None (occurrence: None)
  Receive Date: 20110218
  Receipt Date: 20110214
  Transmission Date: 20110831
  Serious: Yes (Hospitalization, Other)
  Sender: FDA-Public Use
  Company Number: CH-PFIZER INC-2010065338

PATIENT
  Age: 26 Year
  Sex: Female

DRUGS (3)
  1. ZOLPIDEM [Suspect]
     Dosage: UNK
     Route: 048
  2. LYRICA [Suspect]
     Dosage: 450 MG, 1X/DAY
     Route: 048
  3. LYRICA [Suspect]
     Dosage: 75 MG, UNK
     Route: 048

REACTIONS (3)
  - EUPHORIC MOOD [None]
  - DRUG DEPENDENCE [None]
  - INTENTIONAL OVERDOSE [None]
